FAERS Safety Report 15122496 (Version 1)
Quarter: 2018Q3

REPORT INFORMATION
  Report Type: Spontaneous
  Country: FR (occurrence: FR)
  Receive Date: 20180709
  Receipt Date: 20180709
  Transmission Date: 20181010
  Serious: Yes (Other)
  Sender: FDA-Public Use
  Company Number: PHHY2018FR038953

PATIENT
  Age: 70 Year
  Sex: Male
  Weight: 95 kg

DRUGS (6)
  1. CANDESARTAN CILEXETIL. [Suspect]
     Active Substance: CANDESARTAN CILEXETIL
     Indication: HYPERTENSION
     Dosage: 8 MG, QD
     Route: 048
     Dates: end: 20180207
  2. SOTALEX [Suspect]
     Active Substance: SOTALOL
     Indication: DUODENAL OBSTRUCTION
     Dosage: 160 MG, QD (80 MG, BID)
     Route: 048
     Dates: start: 20180207
  3. SOTALEX [Suspect]
     Active Substance: SOTALOL
     Indication: CARDIAC DISORDER
     Dosage: UNK
     Route: 065
  4. SOTALEX [Suspect]
     Active Substance: SOTALOL
     Indication: HYPERTENSION
  5. KARDEGIC [Concomitant]
     Active Substance: ASPIRIN DL-LYSINE
     Indication: PRODUCT USED FOR UNKNOWN INDICATION
     Dosage: 160 MG, UNK
     Route: 048
  6. ASPIRIN. [Concomitant]
     Active Substance: ASPIRIN
     Indication: PRODUCT USED FOR UNKNOWN INDICATION
     Dosage: 1 DF, UNK (80 OR 160 MG HE DID NOT REMEMBER)
     Route: 065

REACTIONS (6)
  - Nausea [Unknown]
  - Flatulence [Not Recovered/Not Resolved]
  - Lactose intolerance [Unknown]
  - Abdominal pain [Unknown]
  - Wrong technique in product usage process [Unknown]
  - Angioedema [Recovered/Resolved]

NARRATIVE: CASE EVENT DATE: 20180207
